FAERS Safety Report 24325225 (Version 1)
Quarter: 2024Q3

REPORT INFORMATION
  Report Type: Spontaneous
  Country: US (occurrence: US)
  Receive Date: 20240916
  Receipt Date: 20240916
  Transmission Date: 20241016
  Serious: No
  Sender: AMGEN
  Company Number: US-AMGEN-USASP2024180732

PATIENT
  Age: 49 Year
  Sex: Male

DRUGS (1)
  1. TEPEZZA [Suspect]
     Active Substance: TEPROTUMUMAB-TRBW
     Indication: Endocrine ophthalmopathy
     Dosage: UNK, Q3WK,(FIRST COURSE COMPLETED, X8 INFUSIONS)
     Route: 042
     Dates: start: 202305, end: 2023

REACTIONS (3)
  - Diplopia [Not Recovered/Not Resolved]
  - Visual impairment [Unknown]
  - Eyelid ptosis [Unknown]

NARRATIVE: CASE EVENT DATE: 20240101
